FAERS Safety Report 13622812 (Version 5)
Quarter: 2018Q1

REPORT INFORMATION
  Report Type: Spontaneous
  Country: DE (occurrence: DE)
  Receive Date: 20170607
  Receipt Date: 20180330
  Transmission Date: 20180508
  Serious: Yes (Death, Hospitalization, Other)
  Sender: FDA-Public Use
  Company Number: DE-TEVA-773615GER

PATIENT
  Age: 67 Year
  Sex: Male
  Weight: 98 kg

DRUGS (10)
  1. SPIRONOLACTON [Suspect]
     Active Substance: SPIRONOLACTONE
     Indication: CARDIAC FAILURE
     Dosage: 50 MILLIGRAM DAILY;
     Route: 048
  2. ISOSORBID MONONITRAT [Concomitant]
     Indication: ANGINA PECTORIS
     Route: 048
  3. INEGY 10 MG/40 MG [Concomitant]
     Active Substance: EZETIMIBE\SIMVASTATIN
     Indication: HYPERLIPIDAEMIA
     Dosage: 1 DOSAGE FORM CONTAINS 10 MG EZETIMIBE AND 40 MG SIMVASTATIN
     Route: 048
  4. ELIQUIS [Concomitant]
     Active Substance: APIXABAN
     Indication: ATRIAL FIBRILLATION
     Dosage: 10 MILLIGRAM DAILY;
     Route: 048
  5. METOPROLOL. [Concomitant]
     Active Substance: METOPROLOL
     Indication: ATRIAL FIBRILLATION
     Dosage: 190 MILLIGRAM DAILY;
     Route: 048
  6. METFORMIN [Concomitant]
     Active Substance: METFORMIN HYDROCHLORIDE
     Indication: DIABETES MELLITUS
     Dosage: 1700 MILLIGRAM DAILY;
     Route: 048
  7. ENTRESTO [Suspect]
     Active Substance: SACUBITRIL\VALSARTAN
     Indication: CARDIAC FAILURE
     Dosage: 2 DOSAGE FORMS DAILY; 1 DOSAGE FORM CONTAINS 24 MG SACUBITRIL AND 26 MG VALSARTAN
     Route: 048
     Dates: start: 20170425
  8. ALLOPURINOL. [Concomitant]
     Active Substance: ALLOPURINOL
     Route: 048
  9. BETA-ACETYLDIGOXIN [Concomitant]
     Active Substance: ACETYLDIGITOXIN
     Indication: ATRIAL FIBRILLATION
     Dosage: .2 MILLIGRAM DAILY;
     Route: 048
  10. TOREM [Suspect]
     Active Substance: TORSEMIDE
     Indication: CARDIAC FAILURE
     Dosage: 20 MILLIGRAM DAILY;
     Route: 048

REACTIONS (17)
  - Sudden cardiac death [Fatal]
  - Syncope [Fatal]
  - Acute myocardial infarction [Unknown]
  - Cardiac arrest [Fatal]
  - Orthopnoea [Unknown]
  - Troponin I increased [Unknown]
  - Tachypnoea [Unknown]
  - General physical health deterioration [Unknown]
  - Nausea [Fatal]
  - Oedema peripheral [Unknown]
  - Vomiting [Fatal]
  - Mucosal dryness [Unknown]
  - Metabolic acidosis [Fatal]
  - Pallor [Unknown]
  - Diarrhoea [Fatal]
  - Anuria [Fatal]
  - Acute kidney injury [Fatal]

NARRATIVE: CASE EVENT DATE: 20170501
